FAERS Safety Report 16277629 (Version 1)
Quarter: 2019Q2

REPORT INFORMATION
  Report Type: Spontaneous
  Country: US (occurrence: US)
  Receive Date: 20190506
  Receipt Date: 20190506
  Transmission Date: 20190711
  Serious: No
  Sender: FDA-Public Use
  Company Number: US-009507513-1905USA000712

PATIENT
  Age: 24 Year
  Sex: Male

DRUGS (7)
  1. TRUSOPT [Suspect]
     Active Substance: DORZOLAMIDE HYDROCHLORIDE
     Indication: CORNEAL OEDEMA
  2. ACETAZOLAMIDE. [Suspect]
     Active Substance: ACETAZOLAMIDE
     Indication: CORNEAL OEDEMA
     Route: 048
  3. TIMOLOL MALEATE. [Suspect]
     Active Substance: TIMOLOL MALEATE
     Indication: CORNEAL OEDEMA
  4. LATANOPROST. [Suspect]
     Active Substance: LATANOPROST
     Indication: CORNEAL OEDEMA
  5. VALACYCLOVIR HYDROCHLORIDE. [Concomitant]
     Active Substance: VALACYCLOVIR HYDROCHLORIDE
     Indication: EYE INFLAMMATION
     Route: 048
  6. PREDNISOLONE ACETATE. [Concomitant]
     Active Substance: PREDNISOLONE ACETATE
     Indication: EYE INFLAMMATION
     Dosage: 4 TIMES DAILY
     Route: 061
  7. BRIMONIDINE TARTRATE. [Suspect]
     Active Substance: BRIMONIDINE TARTRATE
     Indication: CORNEAL OEDEMA

REACTIONS (1)
  - Drug ineffective [Not Recovered/Not Resolved]
